FAERS Safety Report 5978041-2 (Version None)
Quarter: 2008Q4

REPORT INFORMATION
  Report Type: 
  Country: None (occurrence: None)
  Receive Date: 20081126
  Receipt Date: 20081118
  Transmission Date: 20090506
  Serious: Yes (Hospitalization)
  Sender: FDA-Public Use
  Company Number: 2008-187087-NL

PATIENT
  Age: 46 Year
  Sex: Female

DRUGS (4)
  1. DANAPAROID SODIUM [Suspect]
     Indication: THROMBOSIS
     Dosage: DF
     Route: 042
  2. ACETYSALICYLIC ACID [Concomitant]
  3. ALPROSTADIL [Concomitant]
  4. ANALGESICS [Concomitant]

REACTIONS (4)
  - AORTIC THROMBOSIS [None]
  - PERIPHERAL ISCHAEMIA [None]
  - STENT OCCLUSION [None]
  - VAGINAL HAEMORRHAGE [None]
